FAERS Safety Report 8992006 (Version 2)
Quarter: 2013Q1

REPORT INFORMATION
  Report Type: Spontaneous
  Country: US (occurrence: US)
  Receive Date: 20121231
  Receipt Date: 20130313
  Transmission Date: 20140127
  Serious: Yes (Other)
  Sender: FDA-Public Use
  Company Number: CHPA2012US025483

PATIENT
  Age: 67 Year
  Sex: Female

DRUGS (2)
  1. 4 WAY FAST ACTING NASAL SPRAY [Suspect]
     Indication: HYPERSENSITIVITY
     Dosage: 1 SPRAY PER NOSTRIL, PRN
     Route: 045
     Dates: start: 1970
  2. PATANASE [Concomitant]
     Indication: HYPERSENSITIVITY
     Dosage: UNK, UNK

REACTIONS (3)
  - Vascular occlusion [Recovered/Resolved]
  - Sinusitis [Unknown]
  - Underdose [Unknown]
